FAERS Safety Report 4653737-3 (Version None)
Quarter: 2005Q2

REPORT INFORMATION
  Report Type: 
  Country: None (occurrence: None)
  Receive Date: 20050504
  Receipt Date: 20050425
  Transmission Date: 20051028
  Serious: Yes (Other)
  Sender: FDA-Public Use
  Company Number: HQWYE588425AUG04

PATIENT
  Age: 51 Year
  Sex: Female
  Weight: 108.96 kg

DRUGS (4)
  1. PREMPRO [Suspect]
     Indication: HOT FLUSH
     Dosage: ORAL
     Route: 048
     Dates: start: 20000501, end: 20010301
  2. PREMPRO [Suspect]
     Indication: INSOMNIA
     Dosage: ORAL
     Route: 048
     Dates: start: 20000501, end: 20010301
  3. PREMARIN [Suspect]
     Indication: HOT FLUSH
     Dosage: ORAL
     Route: 048
     Dates: start: 20010101, end: 20010301
  4. PREMARIN [Suspect]
     Indication: INSOMNIA
     Dosage: ORAL
     Route: 048
     Dates: start: 20010101, end: 20010301

REACTIONS (6)
  - ARTERIAL THROMBOSIS LIMB [None]
  - CEREBROVASCULAR ACCIDENT [None]
  - HYPOAESTHESIA [None]
  - LEG AMPUTATION [None]
  - MAMMOGRAM ABNORMAL [None]
  - PHANTOM PAIN [None]
